FAERS Safety Report 25712393 (Version 1)
Quarter: 2025Q3

REPORT INFORMATION
  Report Type: Spontaneous
  Country: EU (occurrence: EU)
  Receive Date: 20250821
  Receipt Date: 20250821
  Transmission Date: 20251021
  Serious: Yes (Hospitalization)
  Sender: BRISTOL-MYERS SQUIBB COMPANY
  Company Number: EU-BRISTOL-MYERS SQUIBB COMPANY-2025-115628

PATIENT
  Age: 51 Year
  Sex: Female

DRUGS (1)
  1. SOTYKTU [Suspect]
     Active Substance: DEUCRAVACITINIB
     Indication: Psoriasis
     Dates: start: 202501

REACTIONS (4)
  - Gastrointestinal infection [Unknown]
  - Perioral dermatitis [Unknown]
  - Seborrhoeic dermatitis [Unknown]
  - Acne [Unknown]

NARRATIVE: CASE EVENT DATE: 20250501
